FAERS Safety Report 19052651 (Version 1)
Quarter: 2021Q1

REPORT INFORMATION
  Report Type: Spontaneous
  Country: US (occurrence: US)
  Receive Date: 20210324
  Receipt Date: 20210324
  Transmission Date: 20210420
  Serious: Yes (Hospitalization)
  Sender: FDA-Public Use
  Company Number: US-SUN PHARMACEUTICAL INDUSTRIES LTD-2021R1-286981

PATIENT
  Age: 17 Year
  Sex: Female

DRUGS (10)
  1. BLEOMYCIN [Suspect]
     Active Substance: BLEOMYCIN SULFATE
     Indication: VANISHING BILE DUCT SYNDROME
  2. CYCLOPHOSPHAMIDE. [Suspect]
     Active Substance: CYCLOPHOSPHAMIDE
     Indication: HODGKIN^S DISEASE
     Route: 065
  3. ADRIAMYCIN [Suspect]
     Active Substance: DOXORUBICIN HYDROCHLORIDE
     Indication: HODGKIN^S DISEASE
     Dosage: UNK
     Route: 065
  4. PREDNISONE. [Suspect]
     Active Substance: PREDNISONE
     Indication: HODGKIN^S DISEASE
     Dosage: UNK
     Route: 065
  5. ADRIAMYCIN [Suspect]
     Active Substance: DOXORUBICIN HYDROCHLORIDE
     Indication: VANISHING BILE DUCT SYNDROME
  6. ETOPOSIDE. [Suspect]
     Active Substance: ETOPOSIDE
     Indication: VANISHING BILE DUCT SYNDROME
     Dosage: UNK
     Route: 065
  7. ETOPOSIDE. [Suspect]
     Active Substance: ETOPOSIDE
     Indication: HODGKIN^S DISEASE
  8. CYCLOPHOSPHAMIDE. [Suspect]
     Active Substance: CYCLOPHOSPHAMIDE
     Indication: VANISHING BILE DUCT SYNDROME
  9. PREDNISONE. [Suspect]
     Active Substance: PREDNISONE
     Indication: VANISHING BILE DUCT SYNDROME
  10. BLEOMYCIN [Suspect]
     Active Substance: BLEOMYCIN SULFATE
     Indication: HODGKIN^S DISEASE
     Route: 065

REACTIONS (2)
  - Toxicity to various agents [Unknown]
  - Blood bilirubin increased [Recovered/Resolved]
